FAERS Safety Report 8475147-3 (Version None)
Quarter: 2012Q2

REPORT INFORMATION
  Report Type: 
  Country: None (occurrence: None)
  Receive Date: 20120628
  Receipt Date: 20120620
  Transmission Date: 20120825
  Serious: Yes (Other)
  Sender: FDA-Public Use
  Company Number: JP-PFIZER INC-2012128264

PATIENT
  Age: 85 Year
  Sex: Male
  Weight: 65 kg

DRUGS (7)
  1. VITAMIN B12 [Concomitant]
     Dosage: UNK
     Route: 048
  2. LYRICA [Suspect]
     Indication: LUMBAR RADICULOPATHY
     Dosage: 150 MG, 1X/DAY
     Route: 048
     Dates: start: 20110917, end: 20120404
  3. LYRICA [Suspect]
     Indication: CERVICOBRACHIAL SYNDROME
     Dosage: 225 MG, 1X/DAY
     Route: 048
     Dates: start: 20120405, end: 20120410
  4. OPALMON [Concomitant]
     Dosage: UNK
     Route: 048
  5. LYRICA [Suspect]
     Dosage: 300 MG, 1X/DAY
     Route: 048
     Dates: start: 20120411, end: 20120423
  6. CRAVIT [Concomitant]
     Dosage: UNK
     Route: 048
  7. LOXONIN [Concomitant]
     Dosage: UNK
     Route: 048

REACTIONS (4)
  - DIZZINESS [None]
  - EXCORIATION [None]
  - SKIN WOUND [None]
  - FALL [None]
